FAERS Safety Report 7475727-8 (Version None)
Quarter: 2011Q2

REPORT INFORMATION
  Report Type: 
  Country: None (occurrence: None)
  Receive Date: 20110510
  Receipt Date: 20110510
  Transmission Date: 20111010
  Serious: Yes (Death)
  Sender: FDA-Public Use
  Company Number: None

PATIENT
  Age: 85 Year
  Sex: Male
  Weight: 72.6 kg

DRUGS (9)
  1. PANTOPRAZOLE [Concomitant]
  2. METOPROLOL SUCCINATE [Concomitant]
  3. PRADAXA [Suspect]
     Indication: ATRIAL FIBRILLATION
     Dosage: 75 MG BID PO
     Route: 048
     Dates: start: 20110425, end: 20110425
  4. IPRATROPIUM BROMIDE AND ALBUTEROL SULFATE [Concomitant]
  5. ROSUVASTATIN [Concomitant]
  6. FUROSEMIDE [Concomitant]
  7. BUDESONIDE [Concomitant]
  8. ENOXAPARIN [Concomitant]
  9. ASPIRIN [Concomitant]

REACTIONS (5)
  - HAEMORRHAGE INTRACRANIAL [None]
  - SUBDURAL HAEMORRHAGE [None]
  - FALL [None]
  - HEAD INJURY [None]
  - SUBARACHNOID HAEMORRHAGE [None]
